FAERS Safety Report 9357026 (Version 1)
Quarter: 2013Q2

REPORT INFORMATION
  Report Type: Spontaneous
  Country: IN (occurrence: IN)
  Receive Date: 20130620
  Receipt Date: 20130620
  Transmission Date: 20140414
  Serious: Yes (Death, Life-Threatening)
  Sender: FDA-Public Use
  Company Number: IN-ROCHE-1238146

PATIENT
  Age: 54 Year
  Sex: Male
  Weight: 68 kg

DRUGS (6)
  1. METALYSE [Suspect]
     Indication: ACUTE MYOCARDIAL INFARCTION
     Route: 042
     Dates: start: 20130416, end: 20130416
  2. FRAGMIN [Concomitant]
  3. CARDACE [Concomitant]
  4. ATEN [Concomitant]
  5. CLOPILET [Concomitant]
  6. ECOSPRIN [Concomitant]

REACTIONS (2)
  - Electrocardiogram ST segment abnormal [Fatal]
  - Chest pain [Fatal]
